FAERS Safety Report 10986954 (Version 1)
Quarter: 2015Q1

REPORT INFORMATION
  Report Type: Spontaneous
  Country: US (occurrence: None)
  Receive Date: 20150304
  Receipt Date: 20150304
  Transmission Date: 20150721
  Serious: Yes (Hospitalization)
  Sender: FDA-Public Use
  Company Number: TPA2012A05506

PATIENT
  Age: 86 Year
  Sex: Female

DRUGS (6)
  1. OXYCOTIN [Concomitant]
  2. LANSOPRAZOLE. [Suspect]
     Active Substance: LANSOPRAZOLE
     Indication: OFF LABEL USE
     Route: 048
     Dates: start: 201203
  3. LANSOPRAZOLE. [Suspect]
     Active Substance: LANSOPRAZOLE
     Indication: GASTROOESOPHAGEAL REFLUX DISEASE
     Route: 048
     Dates: start: 201203
  4. ANTIHYPERTENSIVE (ANTIHYPERTENSIVES) [Concomitant]
  5. TRAMADOL [Concomitant]
     Active Substance: TRAMADOL
  6. DRUG THERAPY NOS (ALL OTHER THERAPEUTIC [Concomitant]

REACTIONS (7)
  - Spinal fracture [None]
  - Incorrect drug administration duration [None]
  - Dysgeusia [None]
  - Incorrect drug dosage form administered [None]
  - Chest pain [None]
  - Tremor [None]
  - Diarrhoea [None]

NARRATIVE: CASE EVENT DATE: 201203
